FAERS Safety Report 24993350 (Version 2)
Quarter: 2025Q1

REPORT INFORMATION
  Report Type: Spontaneous
  Country: JP (occurrence: JP)
  Receive Date: 20250221
  Receipt Date: 20250306
  Transmission Date: 20250409
  Serious: Yes (Hospitalization, Other)
  Sender: GLAXOSMITHKLINE
  Company Number: JP-GSKNCCC-Case-02233945_AE-94152

PATIENT

DRUGS (1)
  1. SULTANOL [Suspect]
     Active Substance: ALBUTEROL SULFATE

REACTIONS (4)
  - Lung neoplasm malignant [Unknown]
  - Pneumonia [Unknown]
  - Immobilisation syndrome [Unknown]
  - Circumstance or information capable of leading to medication error [Unknown]
